FAERS Safety Report 7901229-8 (Version None)
Quarter: 2011Q4

REPORT INFORMATION
  Report Type: 
  Country: None (occurrence: None)
  Receive Date: 20111108
  Receipt Date: 20111027
  Transmission Date: 20120403
  Serious: Yes (Hospitalization)
  Sender: FDA-Public Use
  Company Number: PHHO2011FR12513

PATIENT
  Sex: Male
  Weight: 77 kg

DRUGS (6)
  1. LASIX [Concomitant]
     Dosage: 80 MG, UNK
     Route: 048
     Dates: start: 20110611
  2. AUGMENTIN [Concomitant]
     Indication: INFECTED LYMPHOCELE
     Dosage: 500 MG, TID
     Route: 048
     Dates: start: 20110711
  3. RAD 666 / RAD 001A [Suspect]
     Indication: RENAL TRANSPLANT
     Dosage: UNK
  4. MYCOPHENOLATE MOFETIL (CELLCEPT) [Concomitant]
     Indication: RENAL TRANSPLANT
     Dosage: 500 MG, BID
     Route: 048
     Dates: start: 20110528
  5. PREDNISOLONE [Concomitant]
     Indication: RENAL TRANSPLANT
     Dosage: 10 MG, QD
     Route: 048
     Dates: start: 20110519
  6. PROGRAF [Concomitant]
     Indication: RENAL TRANSPLANT
     Dosage: 1.5 MG, BID
     Route: 048
     Dates: start: 20110610

REACTIONS (4)
  - RENAL IMPAIRMENT [None]
  - DEVICE DISLOCATION [None]
  - SUPERINFECTION [None]
  - HYDRONEPHROSIS [None]
